FAERS Safety Report 9995463 (Version 1)
Quarter: 2014Q1

REPORT INFORMATION
  Report Type: Spontaneous
  Country: SG (occurrence: SG)
  Receive Date: 20140311
  Receipt Date: 20140311
  Transmission Date: 20141002
  Serious: Yes (Death, Life-Threatening, Hospitalization, Other)
  Sender: FDA-Public Use
  Company Number: SG-BAYER-2014-031081

PATIENT
  Age: 49 Year
  Sex: Female

DRUGS (8)
  1. CIPROFLOXACIN [Suspect]
     Indication: BACTERAEMIA
     Dosage: UNK
     Route: 042
  2. PIPERACILLIN W/TAZOBACTAM [Concomitant]
     Indication: BACTERAEMIA
     Dosage: UNK
     Route: 042
  3. PIPERACILLIN W/TAZOBACTAM [Concomitant]
     Indication: CELLULITIS
  4. PIPERACILLIN W/TAZOBACTAM [Concomitant]
     Indication: ANAL ABSCESS
  5. VANCOMYCIN [Concomitant]
     Indication: BACTERAEMIA
     Dosage: UNK
     Route: 042
  6. RIFAMPICIN [Concomitant]
     Indication: BACTERAEMIA
     Dosage: 150 MG, BID
     Route: 048
  7. MINOCYCLINE [Concomitant]
     Indication: BACTERAEMIA
     Dosage: 100 MG, BID
     Route: 048
  8. LEVOFLOXACIN [Concomitant]
     Indication: BACTERAEMIA
     Dosage: 500 MG/DAY

REACTIONS (5)
  - Sepsis [Fatal]
  - Pathogen resistance [None]
  - Septic shock [None]
  - Thrombocytopenia [None]
  - Cerebrovascular accident [None]
